FAERS Safety Report 7951157-7 (Version None)
Quarter: 2011Q4

REPORT INFORMATION
  Report Type: 
  Country: None (occurrence: None)
  Receive Date: 20111128
  Receipt Date: 20111111
  Transmission Date: 20120403
  Serious: Yes (Other)
  Sender: FDA-Public Use
  Company Number: IT-2011-2999

PATIENT
  Age: 73 Year
  Sex: Female

DRUGS (13)
  1. HERCEPTIN [Suspect]
     Indication: BREAST CANCER
     Dosage: 400 MG IV
     Route: 042
     Dates: start: 20110227
  2. TRIMETON [Concomitant]
  3. LEVOTHYROXINE SODIUM [Concomitant]
  4. RAMIPRIL [Concomitant]
  5. TICLID [Concomitant]
  6. LASIX [Concomitant]
  7. METFORMIN HCL [Concomitant]
  8. CARDICOR [Concomitant]
  9. NOVORAPID [Concomitant]
  10. RABEPRAZOLE SODIUM [Concomitant]
  11. LANOXIN [Concomitant]
  12. LEVEMIR [Concomitant]
  13. NAVELBINE [Suspect]
     Indication: BREAST CANCER
     Dosage: 30 MG IV
     Route: 042
     Dates: start: 20110217

REACTIONS (3)
  - CHILLS [None]
  - HYPERTENSIVE CRISIS [None]
  - TACHYCARDIA [None]
